FAERS Safety Report 15249725 (Version 1)
Quarter: 2018Q3

REPORT INFORMATION
  Report Type: Spontaneous
  Country: US (occurrence: US)
  Receive Date: 20180807
  Receipt Date: 20180807
  Transmission Date: 20181010
  Serious: No
  Sender: FDA-Public Use
  Company Number: US-MYLANLABS-2018M1055870

PATIENT
  Sex: Female
  Weight: 84 kg

DRUGS (8)
  1. TOLTERODINE TARTRATE EXTENDED?RELEASE CAPSULES [Suspect]
     Active Substance: TOLTERODINE TARTRATE
     Indication: PRODUCT USED FOR UNKNOWN INDICATION
     Dosage: 4 MG, UNK
     Route: 048
     Dates: start: 20170223
  2. AMLODIPINE [Concomitant]
     Active Substance: AMLODIPINE BESYLATE
     Indication: PRODUCT USED FOR UNKNOWN INDICATION
  3. PRILOSEC [Concomitant]
     Active Substance: OMEPRAZOLE MAGNESIUM
     Indication: PRODUCT USED FOR UNKNOWN INDICATION
  4. TOLTERODINE TARTRATE EXTENDED?RELEASE CAPSULES [Suspect]
     Active Substance: TOLTERODINE TARTRATE
     Dosage: UNK
  5. TOLTERODINE TARTRATE EXTENDED?RELEASE CAPSULES [Suspect]
     Active Substance: TOLTERODINE TARTRATE
     Dosage: UNK
  6. ATORVASTATIN [Concomitant]
     Active Substance: ATORVASTATIN
     Indication: PRODUCT USED FOR UNKNOWN INDICATION
  7. TOLTERODINE TARTRATE EXTENDED?RELEASE CAPSULES [Suspect]
     Active Substance: TOLTERODINE TARTRATE
     Dosage: UNK
  8. ESTRADIOL. [Concomitant]
     Active Substance: ESTRADIOL
     Indication: PRODUCT USED FOR UNKNOWN INDICATION

REACTIONS (4)
  - Anger [Not Recovered/Not Resolved]
  - Dry mouth [Not Recovered/Not Resolved]
  - Incorrect dose administered [Not Recovered/Not Resolved]
  - Drug ineffective [Not Recovered/Not Resolved]
